FAERS Safety Report 5702514-0 (Version None)
Quarter: 2008Q2

REPORT INFORMATION
  Report Type: 
  Country: None (occurrence: None)
  Receive Date: 20080411
  Receipt Date: 20070219
  Transmission Date: 20081010
  Serious: No
  Sender: FDA-Public Use
  Company Number: US-ASTRAZENECA-2007UW03216

PATIENT
  Age: 74 Year
  Sex: Female
  Weight: 63.5 kg

DRUGS (5)
  1. TENORMIN [Suspect]
     Indication: HYPERTENSION
     Route: 048
  2. TENORMIN [Suspect]
     Route: 048
  3. TENORMIN [Suspect]
     Route: 048
  4. DIOVAN [Concomitant]
  5. HYDROCHLOROTHIAZIDE [Concomitant]

REACTIONS (4)
  - DRUG INEFFECTIVE [None]
  - EXTRASYSTOLES [None]
  - FATIGUE [None]
  - MALAISE [None]
